FAERS Safety Report 11043143 (Version 1)
Quarter: 2015Q2

REPORT INFORMATION
  Report Type: Spontaneous
  Country: None (occurrence: None)
  Receive Date: 20150416
  Receipt Date: 20150416
  Transmission Date: 20150821
  Serious: Yes (Disabling)
  Sender: FDA-Public Use
  Company Number: None

PATIENT
  Age: 31 Year
  Sex: Female
  Weight: 58.97 kg

DRUGS (1)
  1. VIORELE [Suspect]
     Active Substance: DESOGESTREL\ETHINYL ESTRADIOL
     Indication: CONTRACEPTION
     Dosage: ONCE DAILY

REACTIONS (5)
  - Anxiety [None]
  - Depression [None]
  - Disturbance in attention [None]
  - Migraine [None]
  - Decreased interest [None]

NARRATIVE: CASE EVENT DATE: 20150414
